FAERS Safety Report 10027690 (Version 1)
Quarter: 2014Q1

REPORT INFORMATION
  Report Type: Spontaneous
  Country: DE (occurrence: None)
  Receive Date: 20140318
  Receipt Date: 20140318
  Transmission Date: 20141002
  Serious: Yes (Other)
  Sender: FDA-Public Use
  Company Number: NGX_02285_2014

PATIENT
  Age: 37 Year
  Sex: Female

DRUGS (5)
  1. QUTENZA (CAPSAICIN) PATCH (179 MG, 179 MG) [Suspect]
     Indication: RADICULAR PAIN
     Dosage: 1 DF [PATCH] TOPICAL
     Dates: start: 20131210, end: 20131210
  2. QUTENZA (CAPSAICIN) PATCH (179 MG, 179 MG) [Suspect]
     Indication: NEUROPATHY PERIPHERAL
     Dosage: 1 DF [PATCH] TOPICAL
     Dates: start: 20131210, end: 20131210
  3. OXYCODONE [Concomitant]
  4. LYRICA [Concomitant]
  5. AMITRIPTYLIN [Concomitant]

REACTIONS (5)
  - Dysaesthesia [None]
  - Inappropriate schedule of drug administration [None]
  - Drug effect decreased [None]
  - Application site paraesthesia [None]
  - Application site pain [None]
